FAERS Safety Report 5614751-4 (Version None)
Quarter: 2008Q1

REPORT INFORMATION
  Report Type: 
  Country: None (occurrence: None)
  Receive Date: 20080205
  Receipt Date: 20080128
  Transmission Date: 20080703
  Serious: Yes (Hospitalization)
  Sender: FDA-Public Use
  Company Number: US-ELI_LILLY_AND_COMPANY-US200711002590

PATIENT
  Sex: Male
  Weight: 101.59 kg

DRUGS (6)
  1. BYETTA [Suspect]
     Dosage: 5 UG, 2/D
     Route: 058
     Dates: start: 20070615, end: 20070725
  2. GLUCOTROL [Concomitant]
     Dosage: 10 MG, DAILY (1/D)
     Dates: start: 20040101
  3. METFORMIN HCL [Concomitant]
     Dosage: 1000 MG, 2/D
     Dates: start: 20010101
  4. ADVIL                              /00109201/ [Concomitant]
     Dosage: UNK, DAILY (1/D)
  5. DIOVAN [Concomitant]
  6. ASPIRIN [Concomitant]
     Dosage: UNK, UNKNOWN

REACTIONS (3)
  - CONSTIPATION [None]
  - RENAL FAILURE ACUTE [None]
  - RENAL TUBULAR NECROSIS [None]
